FAERS Safety Report 5323916-0 (Version None)
Quarter: 2007Q2

REPORT INFORMATION
  Report Type: 
  Country: None (occurrence: None)
  Receive Date: 20070514
  Receipt Date: 20070510
  Transmission Date: 20071010
  Serious: Yes (Other)
  Sender: FDA-Public Use
  Company Number: AU-SANOFI-SYNTHELABO-A01200703431

PATIENT
  Sex: Male

DRUGS (5)
  1. RISPERIDONE [Concomitant]
     Indication: SCHIZOPHRENIA
     Route: 048
  2. STILNOX [Suspect]
     Indication: SLEEP DISORDER
     Dosage: 10 MG
     Route: 048
  3. ANTENEX [Concomitant]
     Indication: ANXIETY
     Route: 048
  4. ANTENEX [Concomitant]
     Indication: SLEEP DISORDER
     Route: 048
  5. PANAFCORTELONE [Concomitant]
     Indication: ANTIINFLAMMATORY THERAPY
     Route: 048
     Dates: start: 20070111, end: 20070125

REACTIONS (4)
  - ABNORMAL SLEEP-RELATED EVENT [None]
  - AMNESIA [None]
  - FAECAL INCONTINENCE [None]
  - SLEEP WALKING [None]
